FAERS Safety Report 9145329 (Version 2)
Quarter: 2013Q2

REPORT INFORMATION
  Report Type: Spontaneous
  Country: US (occurrence: None)
  Receive Date: 20130131
  Receipt Date: 20130402
  Transmission Date: 20140414
  Serious: Yes (Death)
  Sender: FDA-Public Use
  Company Number: 2012-1470

PATIENT
  Age: 57 Year
  Sex: Male

DRUGS (3)
  1. KYPROLIS [Suspect]
     Indication: PLASMA CELL MYELOMA
     Dosage: (2 IN 1 WK),  INTRAVENOUS?10/03/2012  -  11/??/2012
     Route: 042
     Dates: start: 20121003, end: 201211
  2. DEXAMETHASONE (DEXAMETHASONE) (DEXAMETHASONE) [Concomitant]
  3. REVLIMID (LENALIDOMIDE) (LENALIDOMIDE) [Concomitant]

REACTIONS (4)
  - Haematocrit decreased [None]
  - Platelet count decreased [None]
  - Liver function test abnormal [None]
  - Plasma cell myeloma [None]
